FAERS Safety Report 4446985-9 (Version None)
Quarter: 2004Q3

REPORT INFORMATION
  Report Type: 
  Country: None (occurrence: None)
  Receive Date: 20040812
  Receipt Date: 20040420
  Transmission Date: 20050211
  Serious: No
  Sender: FDA-Public Use
  Company Number: USA040465483

PATIENT
  Age: 73 Year
  Sex: Male

DRUGS (2)
  1. CIALIS [Suspect]
     Dosage: 10 MG/1 OTHER
  2. LOVASTATIN [Concomitant]

REACTIONS (1)
  - DRUG INEFFECTIVE [None]
